FAERS Safety Report 5186363-0 (Version None)
Quarter: 2006Q4

REPORT INFORMATION
  Report Type: 
  Country: None (occurrence: None)
  Receive Date: 20061220
  Receipt Date: 20060914
  Transmission Date: 20070319
  Serious: Yes (Other)
  Sender: FDA-Public Use
  Company Number: US-ELI_LILLY_AND_COMPANY-US200609003779

PATIENT
  Age: 29 Year
  Sex: Male
  Weight: 91.156 kg

DRUGS (1)
  1. ZYPREXA [Suspect]
     Dosage: UNK, UNKNOWN
     Dates: start: 19970101, end: 20000101

REACTIONS (2)
  - DIABETES MELLITUS [None]
  - RENAL DISORDER [None]
